FAERS Safety Report 24802876 (Version 1)
Quarter: 2025Q1

REPORT INFORMATION
  Report Type: Spontaneous
  Country: US (occurrence: US)
  Receive Date: 20250103
  Receipt Date: 20250103
  Transmission Date: 20250409
  Serious: Yes (Other)
  Sender: AUROBINDO
  Company Number: US-MLMSERVICE-20241212-PI296680-00203-1

PATIENT
  Age: 11 Year
  Sex: Male

DRUGS (3)
  1. LISINOPRIL [Suspect]
     Active Substance: LISINOPRIL
     Indication: Proteinuria
     Route: 065
     Dates: start: 2022, end: 2022
  2. CHOLECALCIFEROL [Concomitant]
     Active Substance: CHOLECALCIFEROL
     Indication: Chronic kidney disease
     Route: 065
     Dates: start: 2022
  3. CALCITRIOL [Concomitant]
     Active Substance: CALCITRIOL
     Indication: Chronic kidney disease
     Route: 065
     Dates: start: 2022

REACTIONS (2)
  - Renal impairment [Recovered/Resolved]
  - Condition aggravated [Recovered/Resolved]

NARRATIVE: CASE EVENT DATE: 20220101
